FAERS Safety Report 18734045 (Version 2)
Quarter: 2021Q1

REPORT INFORMATION
  Report Type: Spontaneous
  Country: US (occurrence: US)
  Receive Date: 20210113
  Receipt Date: 20210302
  Transmission Date: 20210419
  Serious: Yes (Hospitalization)
  Sender: FDA-Public Use
  Company Number: US-TEVA-2021-US-1867375

PATIENT
  Age: 59 Year
  Sex: Male

DRUGS (2)
  1. ABRAXANE [Concomitant]
     Active Substance: PACLITAXEL
     Indication: LUNG SQUAMOUS CELL CARCINOMA RECURRENT
     Route: 065
  2. CARBOPLATIN. [Suspect]
     Active Substance: CARBOPLATIN
     Indication: LUNG SQUAMOUS CELL CARCINOMA RECURRENT
     Route: 065

REACTIONS (3)
  - Oesophagopleural fistula [Recovered/Resolved]
  - Pleural effusion [Unknown]
  - Weight decreased [Unknown]
